FAERS Safety Report 11825829 (Version 1)
Quarter: 2015Q4

REPORT INFORMATION
  Report Type: Spontaneous
  Country: None (occurrence: None)
  Receive Date: 20151209
  Receipt Date: 20151209
  Transmission Date: 20160305
  Serious: No
  Sender: FDA-Public Use
  Company Number: None

PATIENT
  Age: 25 Year
  Sex: Male
  Weight: 70.31 kg

DRUGS (9)
  1. ATENOLOL. [Concomitant]
     Active Substance: ATENOLOL
  2. CLOZAPINE. [Suspect]
     Active Substance: CLOZAPINE
     Indication: PSYCHOTIC DISORDER
     Dosage: 200 MG, QHS/BEDTIME
     Route: 048
     Dates: start: 20151102, end: 20151117
  3. LORAZEPAM. [Concomitant]
     Active Substance: LORAZEPAM
  4. ACETAMINOPHEN. [Concomitant]
     Active Substance: ACETAMINOPHEN
  5. VENLAFAXINE [Concomitant]
     Active Substance: VENLAFAXINE HYDROCHLORIDE
  6. DULCOLAX (BISACODYL) [Concomitant]
     Active Substance: BISACODYL
  7. FENOFIBRATE. [Concomitant]
     Active Substance: FENOFIBRATE
  8. CLOZAPINE. [Suspect]
     Active Substance: CLOZAPINE
     Indication: SCHIZOPHRENIA
     Dosage: 200 MG, QHS/BEDTIME
     Route: 048
     Dates: start: 20151102, end: 20151117
  9. LURASIDONE [Concomitant]
     Active Substance: LURASIDONE

REACTIONS (1)
  - Myocarditis [None]

NARRATIVE: CASE EVENT DATE: 20151117
